FAERS Safety Report 6478204-6 (Version None)
Quarter: 2009Q4

REPORT INFORMATION
  Report Type: 
  Country: None (occurrence: None)
  Receive Date: 20091207
  Receipt Date: 20091123
  Transmission Date: 20100525
  Serious: Yes (Hospitalization, Other)
  Sender: FDA-Public Use
  Company Number: US-SANOFI-AVENTIS-200915362US

PATIENT
  Age: 77 Year
  Sex: Female

DRUGS (38)
  1. ENOXAPARIN SODIUM [Suspect]
     Indication: DRUG USE FOR UNKNOWN INDICATION
     Dosage: DOSE AS USED: UNK
     Dates: start: 20090301, end: 20090101
  2. LASIX [Concomitant]
     Dosage: DOSE AS USED: UNK
     Route: 042
  3. SYNTHROID [Concomitant]
     Dosage: DOSE AS USED: UNK
  4. ATENOLOL [Concomitant]
     Indication: HYPERTENSION
     Dosage: DOSE AS USED: UNK
  5. FERROUS SULFATE TAB [Concomitant]
     Dosage: DOSE AS USED: UNK
  6. K-DUR [Concomitant]
     Dosage: DOSE AS USED: UNK
  7. PRAVACHOL [Concomitant]
  8. COZAAR [Concomitant]
     Dosage: DOSE AS USED: UNK
  9. VANCOMYCIN [Concomitant]
     Indication: ANTIBIOTIC PROPHYLAXIS
     Dosage: DOSE AS USED: UNK
  10. METOCLOPRAMIDE [Concomitant]
     Indication: NAUSEA
     Route: 042
  11. DOCUSATE [Concomitant]
     Route: 048
  12. DULCOLAX [Concomitant]
  13. VALSARTAN [Concomitant]
     Route: 048
  14. INDOMETHACIN [Concomitant]
  15. SODIUM CHLORIDE [Concomitant]
     Dosage: DOSE AS USED: 0.9%
  16. BUPIVACAINE [Concomitant]
     Dates: end: 20090325
  17. MEPERIDINE [Concomitant]
     Dates: end: 20090325
  18. LIDOCAINE 0.5% W/ EPINEPHRINE 1:200,000 [Concomitant]
     Dosage: DOSE AS USED: UNK
  19. FENTANYL [Concomitant]
     Dosage: DOSE AS USED: 100/2ML UG
     Route: 051
     Dates: end: 20090325
  20. MIDAZOLAM HCL [Concomitant]
     Dosage: DOSE AS USED: 2MG/2ML
     Route: 051
  21. LIDOCAINE [Concomitant]
     Dosage: DOSE AS USED: UNK
     Dates: start: 20090325
  22. METHYLPREDNISOLONE [Concomitant]
     Dosage: DOSE AS USED: UNK
     Dates: start: 20090329
  23. ALBUTEROL SULFATE AND IPRATROPIUM BROMIDE [Concomitant]
     Dosage: DOSE AS USED: UNK
  24. HYDROCORTISONE [Concomitant]
  25. ONDANSETRON [Concomitant]
     Dosage: DOSE AS USED: UNK
     Dates: start: 20090328
  26. DIPHENHYDRAMINE HCL [Concomitant]
     Dosage: DOSE AS USED: 25 MG TAB OR IV
     Dates: start: 20090325
  27. ONDANSETRON [Concomitant]
     Dosage: DOSE AS USED: UNK
     Dates: start: 20090326
  28. PERCOCET [Concomitant]
     Dosage: DOSE AS USED: 5/325
  29. XOPENEX [Concomitant]
     Indication: CHRONIC OBSTRUCTIVE PULMONARY DISEASE
     Dosage: DOSE AS USED: 0.63MG/3ML
     Route: 055
  30. FERROUS SULFATE TAB [Concomitant]
     Dates: start: 20090327, end: 20090530
  31. MORPHINE [Concomitant]
     Route: 051
     Dates: start: 20090326
  32. LIDOCAINE [Concomitant]
     Dosage: DOSE AS USED: 100 MG
     Route: 051
     Dates: start: 20090325, end: 20090325
  33. PROPOFOL [Concomitant]
     Dosage: DOSE AS USED: 200 MG
     Route: 051
     Dates: start: 20090325, end: 20090325
  34. PANTOPRAZOLE SODIUM [Concomitant]
     Dosage: DOSE AS USED: UNK
  35. PANTOPRAZOLE SODIUM [Concomitant]
     Dosage: DOSE AS USED: UNK
     Dates: start: 20090329
  36. MILK OF MAGNESIA TAB [Concomitant]
     Dosage: DOSE AS USED: 10-30 ML
  37. NALBUPHINE [Concomitant]
     Dosage: DOSE AS USED: 5 MG
  38. SOLU-MEDROL [Concomitant]
     Route: 042
     Dates: start: 20090329

REACTIONS (8)
  - ANAEMIA [None]
  - CHRONIC OBSTRUCTIVE PULMONARY DISEASE [None]
  - COUGH [None]
  - HAEMATOMA [None]
  - INTRA-ABDOMINAL HAEMATOMA [None]
  - MUSCLE HAEMORRHAGE [None]
  - PAIN [None]
  - PNEUMONIA [None]
